FAERS Safety Report 5112129-3 (Version None)
Quarter: 2006Q3

REPORT INFORMATION
  Report Type: 
  Country: None (occurrence: None)
  Receive Date: 20060922
  Receipt Date: 20060421
  Transmission Date: 20061208
  Serious: No
  Sender: FDA-Public Use
  Company Number: US-GLAXOSMITHKLINE-A0602796A

PATIENT
  Age: 37 Year

DRUGS (1)
  1. ABREVA [Suspect]
     Dates: start: 20060419, end: 20060421

REACTIONS (3)
  - APPLICATION SITE IRRITATION [None]
  - APPLICATION SITE VESICLES [None]
  - HERPES SIMPLEX [None]
